FAERS Safety Report 18807644 (Version 2)
Quarter: 2021Q1

REPORT INFORMATION
  Report Type: Spontaneous
  Country: US (occurrence: US)
  Receive Date: 20210129
  Receipt Date: 20210215
  Transmission Date: 20210419
  Serious: No
  Sender: FDA-Public Use
  Company Number: US-TEVA-2021-US-1872276

PATIENT
  Age: 70 Year
  Sex: Female

DRUGS (1)
  1. HYDROXYCHLOROQUINE SULFATE ACTAVIS [Suspect]
     Active Substance: HYDROXYCHLOROQUINE SULFATE
     Indication: VASCULITIS
     Dosage: 200 MG
     Route: 065

REACTIONS (2)
  - Product use in unapproved indication [Unknown]
  - Inflammation [Recovered/Resolved]
